FAERS Safety Report 7363611-X (Version None)
Quarter: 2011Q1

REPORT INFORMATION
  Report Type: 
  Country: None (occurrence: None)
  Receive Date: 20110321
  Receipt Date: 20110315
  Transmission Date: 20110831
  Serious: Yes (Other)
  Sender: FDA-Public Use
  Company Number: US-PFIZER INC-2011057157

PATIENT
  Sex: Male

DRUGS (14)
  1. FLUCONAZOLE [Concomitant]
     Dosage: UNK
  2. IPRATROPIUM BROMIDE AND ALBUTEROL SULFATE [Concomitant]
     Dosage: UNK
  3. ACETYLSALICYLIC ACID [Concomitant]
     Dosage: UNK
  4. MORPHINE [Concomitant]
     Dosage: UNK
  5. METOPROLOL [Concomitant]
     Dosage: UNK
  6. VICODIN [Concomitant]
     Dosage: UNK
  7. IBUPROFEN [Concomitant]
     Dosage: UNK
  8. TYGACIL [Suspect]
     Indication: ENTEROCOCCAL INFECTION
     Dosage: 50 MG, 2X/DAY
     Route: 042
     Dates: start: 20110311
  9. OXYCODONE [Concomitant]
     Dosage: UNK
  10. RANITIDINE [Concomitant]
     Dosage: UNK
  11. CITALOPRAM [Concomitant]
     Dosage: UNK
  12. DOCUSATE [Concomitant]
     Dosage: UNK
  13. CILOSTAZOL [Concomitant]
     Dosage: UNK
  14. HEPARIN [Concomitant]
     Dosage: UNK

REACTIONS (3)
  - ABNORMAL DREAMS [None]
  - HAEMOGLOBIN DECREASED [None]
  - BLOOD SODIUM DECREASED [None]
